FAERS Safety Report 13169821 (Version 1)
Quarter: 2017Q1

REPORT INFORMATION
  Report Type: Spontaneous
  Country: CA (occurrence: CA)
  Receive Date: 20170201
  Receipt Date: 20170201
  Transmission Date: 20170428
  Serious: Yes (Hospitalization, Other)
  Sender: FDA-Public Use
  Company Number: CA-TEVA-734193ACC

PATIENT
  Age: 74 Year
  Sex: Male
  Weight: 58 kg

DRUGS (12)
  1. ATORVASTATIN CALCIUM. [Concomitant]
     Active Substance: ATORVASTATIN CALCIUM
  2. ZOPICLONE [Concomitant]
     Active Substance: ZOPICLONE
  3. AMPICILLIN [Concomitant]
     Active Substance: AMPICILLIN
  4. VITAMIN B COMPLEX WITH C [Concomitant]
     Active Substance: ASCORBIC ACID\CALCIUM PANTOTHENATE\CYANOCOBALAMIN\NIACINAMIDE\PYRIDOXINE HYDROCHLORIDE\RIBOFLAVIN\THIAMINE MONONITRATE
  5. SAMSCA [Suspect]
     Active Substance: TOLVAPTAN
     Dosage: 15 MILLIGRAM DAILY;
     Route: 048
  6. SAMSCA [Suspect]
     Active Substance: TOLVAPTAN
     Indication: HYPONATRAEMIA
     Route: 048
  7. DESMOPRESSIN [Concomitant]
     Active Substance: DESMOPRESSIN
  8. GENTAMICIN. [Concomitant]
     Active Substance: GENTAMICIN
  9. FUROSEMIDE. [Suspect]
     Active Substance: FUROSEMIDE
     Route: 065
  10. CEFTRIAXONE SODIUM FOR INJECTION BP [Concomitant]
     Active Substance: CEFTRIAXONE SODIUM
  11. HEPARIN SODIUM. [Concomitant]
     Active Substance: HEPARIN SODIUM
  12. PANTOPRAZOLE [Concomitant]
     Active Substance: PANTOPRAZOLE SODIUM

REACTIONS (1)
  - Osmotic demyelination syndrome [Recovered/Resolved]
